FAERS Safety Report 9158546 (Version 2)
Quarter: 2013Q1

REPORT INFORMATION
  Report Type: Report from Study
  Country: CA (occurrence: CA)
  Receive Date: 20130312
  Receipt Date: 20130318
  Transmission Date: 20140127
  Serious: Yes (Death, Hospitalization, Other)
  Sender: FDA-Public Use
  Company Number: CA-ABBOTT-13P-028-1061256-00

PATIENT
  Age: 76 Year
  Sex: Male
  Weight: 72.64 kg

DRUGS (21)
  1. LUPRON DEPOT [Suspect]
     Indication: PROSTATE CANCER
     Dosage: UNSPECIFIED
     Route: 030
     Dates: start: 20120801, end: 20130122
  2. LUPRON DEPOT [Suspect]
     Route: 030
     Dates: start: 20121205
  3. ASPIRIN [Concomitant]
     Indication: CORONARY ARTERY DISEASE
     Route: 048
     Dates: start: 2000
  4. FRAGMIN [Concomitant]
     Indication: THROMBOSIS PROPHYLAXIS
     Dosage: 1 MILLITILITER
     Route: 058
     Dates: start: 2010
  5. PLAVIX [Concomitant]
     Indication: THROMBOSIS PROPHYLAXIS
     Route: 048
     Dates: start: 2010
  6. XGEVA [Concomitant]
     Indication: BONE DISORDER
     Route: 042
  7. XGEVA [Concomitant]
     Indication: PROSTATE CANCER
  8. XGEVA [Concomitant]
     Indication: PROPHYLAXIS
  9. BISOPROLOL [Concomitant]
     Indication: HYPERTENSION
     Route: 048
     Dates: start: 2000
  10. GLICLAZIDE [Concomitant]
     Indication: DIABETES MELLITUS
     Dates: start: 2000
  11. CALCIUM [Concomitant]
     Indication: MINERAL SUPPLEMENTATION
     Route: 048
     Dates: start: 20120612
  12. CALCIUM [Concomitant]
     Indication: HYPOKALAEMIA
  13. PANTOLOC [Concomitant]
     Indication: GASTROOESOPHAGEAL REFLUX DISEASE
     Route: 048
     Dates: start: 2000
  14. TERAZOSIN [Concomitant]
     Indication: URINARY RETENTION
     Route: 048
     Dates: start: 201206
  15. LOSARTAN [Concomitant]
     Indication: HYPERTENSION
     Route: 048
     Dates: start: 2000
  16. CRESTOR [Concomitant]
     Indication: HYPERCHOLESTEROLAEMIA
     Route: 048
     Dates: start: 2000
  17. VITAMIN D [Concomitant]
     Indication: VITAMIN SUPPLEMENTATION
     Route: 048
     Dates: start: 2000
  18. VENTOLIN [Concomitant]
     Indication: CHRONIC OBSTRUCTIVE PULMONARY DISEASE
     Route: 055
     Dates: start: 2000
  19. SPIRIVA [Concomitant]
     Indication: CHRONIC OBSTRUCTIVE PULMONARY DISEASE
     Route: 055
     Dates: start: 2000
  20. METFORMIN [Concomitant]
     Indication: DIABETES MELLITUS
     Route: 048
     Dates: start: 2000
  21. DOMPERIDONE [Concomitant]
     Indication: GASTROOESOPHAGEAL REFLUX DISEASE
     Route: 048
     Dates: start: 2000

REACTIONS (23)
  - Cardiac failure congestive [Fatal]
  - Haematuria [Unknown]
  - Dyspnoea [Recovering/Resolving]
  - Tachycardia [Recovering/Resolving]
  - Cardiomegaly [Unknown]
  - Angiopathy [Unknown]
  - Atrial fibrillation [Unknown]
  - Electrocardiogram ST segment depression [Unknown]
  - Left ventricular hypertrophy [Unknown]
  - Dyspnoea [Unknown]
  - Acute coronary syndrome [Unknown]
  - Ischaemic cardiomyopathy [Unknown]
  - Enterococcal infection [Unknown]
  - Crepitations [Unknown]
  - Dysuria [Unknown]
  - Prostatic specific antigen abnormal [Unknown]
  - Urinary bladder haemorrhage [Unknown]
  - Heart rate increased [Unknown]
  - Hypertension [Unknown]
  - Urethral haemorrhage [Unknown]
  - Chromaturia [Unknown]
  - Red blood cells urine [Unknown]
  - Blood creatinine increased [Unknown]
